FAERS Safety Report 23770064 (Version 3)
Quarter: 2024Q2

REPORT INFORMATION
  Report Type: Other
  Country: CN (occurrence: CN)
  Receive Date: 20240422
  Receipt Date: 20240430
  Transmission Date: 20240716
  Serious: Yes (Hospitalization, Other)
  Sender: FDA-Public Use
  Company Number: CN-002147023-NVSC2024CN079153

PATIENT

DRUGS (1)
  1. RUXOLITINIB [Suspect]
     Active Substance: RUXOLITINIB
     Indication: Myelofibrosis
     Dosage: 1.5 DOSAGE FORM, BID
     Route: 048
     Dates: start: 20220810, end: 20240329

REACTIONS (6)
  - Myelosuppression [Unknown]
  - Blood pressure abnormal [Unknown]
  - Ecchymosis [Recovering/Resolving]
  - Petechiae [Recovering/Resolving]
  - Platelet count decreased [Recovering/Resolving]
  - Haemorrhage subcutaneous [Recovering/Resolving]

NARRATIVE: CASE EVENT DATE: 20240405
